FAERS Safety Report 6973878-5 (Version None)
Quarter: 2010Q3

REPORT INFORMATION
  Report Type: 
  Country: None (occurrence: None)
  Receive Date: 20100909
  Receipt Date: 20100831
  Transmission Date: 20110219
  Serious: Yes (Hospitalization)
  Sender: FDA-Public Use
  Company Number: B0673648A

PATIENT
  Age: 32 Year
  Sex: Male

DRUGS (1)
  1. PROPRANOLOL [Suspect]
     Dosage: 60TABS PER DAY
     Route: 065

REACTIONS (9)
  - DEPRESSED LEVEL OF CONSCIOUSNESS [None]
  - DRUG TOXICITY [None]
  - HYPOTENSION [None]
  - ILL-DEFINED DISORDER [None]
  - JOINT DISLOCATION [None]
  - METABOLIC ACIDOSIS [None]
  - OVERDOSE [None]
  - SHOCK [None]
  - TRISMUS [None]
